FAERS Safety Report 4390133-0 (Version None)
Quarter: 2004Q3

REPORT INFORMATION
  Report Type: 
  Country: None (occurrence: None)
  Receive Date: 20040706
  Receipt Date: 20040401
  Transmission Date: 20050211
  Serious: Yes (Death, Life-Threatening, Hospitalization)
  Sender: FDA-Public Use
  Company Number: FR-MERCK-0404FRA00009

PATIENT
  Age: 85 Year
  Sex: Female
  Weight: 65 kg

DRUGS (3)
  1. ASPIRIN [Concomitant]
     Route: 048
  2. CITALOPRAM [Concomitant]
     Indication: DEPRESSION
     Route: 048
  3. VIOXX [Suspect]
     Indication: ARTHRALGIA
     Route: 048
     Dates: start: 20031210, end: 20040109

REACTIONS (10)
  - ASTHENIA [None]
  - BONE MARROW DEPRESSION [None]
  - BRONCHOPULMONARY ASPERGILLOSIS [None]
  - CHEILITIS [None]
  - COUGH [None]
  - FACIAL PALSY [None]
  - HAEMOPTYSIS [None]
  - OEDEMA [None]
  - PALLOR [None]
  - PANCYTOPENIA [None]
